FAERS Safety Report 6799850-6 (Version None)
Quarter: 2010Q2

REPORT INFORMATION
  Report Type: 
  Country: None (occurrence: None)
  Receive Date: 20100615
  Receipt Date: 20100607
  Transmission Date: 20101027
  Serious: Yes (Other)
  Sender: FDA-Public Use
  Company Number: 2010SP031932

PATIENT
  Age: 52 Year
  Sex: Female
  Weight: 63 kg

DRUGS (8)
  1. MIRTAZAPINE [Suspect]
     Indication: DEPRESSION
     Dosage: 15 MG;QD;PO, 30 MG;QD;PO, 15 MG;QD;PO
     Route: 048
     Dates: start: 20091211, end: 20091214
  2. MIRTAZAPINE [Suspect]
     Indication: DEPRESSION
     Dosage: 15 MG;QD;PO, 30 MG;QD;PO, 15 MG;QD;PO
     Route: 048
     Dates: start: 20091215, end: 20091227
  3. MIRTAZAPINE [Suspect]
     Indication: DEPRESSION
     Dosage: 15 MG;QD;PO, 30 MG;QD;PO, 15 MG;QD;PO
     Route: 048
     Dates: start: 20091230
  4. VENLAFAXINE HCL [Suspect]
     Indication: DEPRESSION
     Dosage: 150 MG;QD;PO, 225 MG;QD;PO, 300 MG;QD;PO
     Route: 048
     Dates: start: 20091210, end: 20091214
  5. VENLAFAXINE HCL [Suspect]
     Indication: DEPRESSION
     Dosage: 150 MG;QD;PO, 225 MG;QD;PO, 300 MG;QD;PO
     Route: 048
     Dates: start: 20091215, end: 20091218
  6. VENLAFAXINE HCL [Suspect]
     Indication: DEPRESSION
     Dosage: 150 MG;QD;PO, 225 MG;QD;PO, 300 MG;QD;PO
     Route: 048
     Dates: start: 20091219, end: 20091221
  7. VENLAFAXINE HCL [Suspect]
     Indication: DEPRESSION
     Dosage: 150 MG;QD;PO, 225 MG;QD;PO, 300 MG;QD;PO
     Route: 048
     Dates: start: 20091222
  8. LEVOTHYROXINE SODIUM [Concomitant]

REACTIONS (2)
  - DYSGEUSIA [None]
  - ORAL DISCOMFORT [None]
